FAERS Safety Report 5589245-5 (Version None)
Quarter: 2008Q1

REPORT INFORMATION
  Report Type: 
  Country: None (occurrence: None)
  Receive Date: 20080114
  Receipt Date: 20080110
  Transmission Date: 20080703
  Serious: Yes (Death)
  Sender: FDA-Public Use
  Company Number: PHFR2008GB00513

PATIENT
  Age: 38 Year
  Sex: Male

DRUGS (2)
  1. CLOZAPINE [Suspect]
     Dosage: UNK, UNK
     Route: 048
     Dates: start: 20050919, end: 20071030
  2. ZAPONEX [Suspect]
     Dosage: UNK, UNK
     Route: 048
     Dates: start: 20071031, end: 20071204

REACTIONS (1)
  - DEATH [None]
